FAERS Safety Report 8878364 (Version 3)
Quarter: 2013Q3

REPORT INFORMATION
  Report Type: Report from Study
  Country: JP (occurrence: JP)
  Receive Date: 20121030
  Receipt Date: 20130828
  Transmission Date: 20140515
  Serious: Yes (Other)
  Sender: FDA-Public Use
  Company Number: JP-VERTEX PHARMACEUTICAL INC.-AE-2012-008970

PATIENT
  Age: 53 Year
  Sex: Male

DRUGS (12)
  1. VX-950 (TELAPREVIR) [Suspect]
     Indication: CHRONIC HEPATITIS C
     Dosage: 2250 MG, QD
     Route: 048
     Dates: start: 20120418, end: 20120711
  2. PEGINTERFERON ALFA-2B [Suspect]
     Indication: CHRONIC HEPATITIS C
     Dosage: 1.5 ?G/KG, QW
     Route: 058
     Dates: start: 20120418, end: 20120628
  3. PEGINTERFERON ALFA-2B [Suspect]
     Dosage: 0.8 ?G/KG, QW
     Route: 058
     Dates: start: 20120705, end: 20120712
  4. PEGINTERFERON ALFA-2B [Suspect]
     Dosage: 0.96 ?G/KG, QW
     Route: 058
     Dates: start: 20120719, end: 20120719
  5. PEGINTERFERON ALFA-2B [Suspect]
     Dosage: 1.1 ?G/KG, QW
     Route: 058
     Dates: start: 20120726, end: 20120927
  6. RIBAVIRIN [Suspect]
     Indication: CHRONIC HEPATITIS C
     Dosage: 800 MG, QD
     Route: 048
     Dates: start: 20120418, end: 20120501
  7. RIBAVIRIN [Suspect]
     Dosage: 400 MG, QD
     Route: 048
     Dates: start: 20120502, end: 20120509
  8. RIBAVIRIN [Suspect]
     Dosage: 200 MG, QD
     Route: 048
     Dates: start: 20120510, end: 20121003
  9. NORVASC [Concomitant]
     Dosage: 10 MG, QD
     Route: 048
  10. RENIVACE [Concomitant]
     Dosage: 10 MG, QD
     Route: 048
  11. ZETIA [Concomitant]
     Dosage: 1 DF, QD
     Route: 048
  12. BASEN [Concomitant]
     Dosage: 0.6 MG, QD
     Route: 048

REACTIONS (3)
  - Rash [Recovered/Resolved]
  - Haemoglobin decreased [Not Recovered/Not Resolved]
  - Blood uric acid increased [Recovered/Resolved]
